FAERS Safety Report 16310315 (Version 7)
Quarter: 2021Q3

REPORT INFORMATION
  Report Type: Report from Study
  Country: US (occurrence: US)
  Receive Date: 20190514
  Receipt Date: 20210816
  Transmission Date: 20211014
  Serious: Yes (Hospitalization, Other)
  Sender: FDA-Public Use
  Company Number: US-SHIRE-US201915577

PATIENT
  Sex: Female

DRUGS (4)
  1. TEDUGLUTIDE [Suspect]
     Active Substance: TEDUGLUTIDE
     Indication: SHORT-BOWEL SYNDROME
     Dosage: 0.2600 UNK, QD
     Route: 058
     Dates: start: 20180408
  2. TEDUGLUTIDE [Suspect]
     Active Substance: TEDUGLUTIDE
     Indication: SHORT-BOWEL SYNDROME
     Dosage: 0.2600 UNK, QD
     Route: 058
     Dates: start: 20180408
  3. TEDUGLUTIDE [Suspect]
     Active Substance: TEDUGLUTIDE
     Indication: SHORT-BOWEL SYNDROME
     Dosage: 0.2600 UNK, QD
     Route: 058
     Dates: start: 20180408
  4. TEDUGLUTIDE [Suspect]
     Active Substance: TEDUGLUTIDE
     Indication: SHORT-BOWEL SYNDROME
     Dosage: 0.2600 UNK, QD
     Route: 058
     Dates: start: 20180408

REACTIONS (7)
  - Weight increased [Unknown]
  - Pyoderma gangrenosum [Unknown]
  - Stoma complication [Not Recovered/Not Resolved]
  - Cardiac disorder [Recovering/Resolving]
  - Crohn^s disease [Recovering/Resolving]
  - Pancreatic disorder [Recovering/Resolving]
  - Renal disorder [Recovering/Resolving]
